FAERS Safety Report 7552415-0 (Version None)
Quarter: 2011Q2

REPORT INFORMATION
  Report Type: 
  Country: None (occurrence: None)
  Receive Date: 20110616
  Receipt Date: 20110611
  Transmission Date: 20111010
  Serious: Yes (Hospitalization, Other)
  Sender: FDA-Public Use
  Company Number: US-PFIZER INC-2011127932

PATIENT
  Sex: Male
  Weight: 85.5 kg

DRUGS (3)
  1. DECADRON [Concomitant]
     Dosage: 4 MG, 2X/DAY
     Dates: start: 20091128
  2. SUTENT [Suspect]
     Indication: GLIOBLASTOMA
     Dosage: 37.5 MG, 1X/DAY
     Route: 048
     Dates: start: 20091216, end: 20100104
  3. DECADRON [Concomitant]
     Dosage: 2 MG, ALTERNATE DAY
     Dates: start: 20090101

REACTIONS (3)
  - PULMONARY EMBOLISM [None]
  - THROMBOCYTOPENIA [None]
  - LUNG INFECTION [None]
